FAERS Safety Report 16649146 (Version 2)
Quarter: 2019Q3

REPORT INFORMATION
  Report Type: Spontaneous
  Country: US (occurrence: US)
  Receive Date: 20190730
  Receipt Date: 20190801
  Transmission Date: 20191004
  Serious: No
  Sender: FDA-Public Use
  Company Number: US-PFIZER INC-2018197193

PATIENT
  Age: 1 Year
  Sex: Male

DRUGS (3)
  1. GENOTROPIN [Suspect]
     Active Substance: SOMATROPIN
     Dosage: 0.35 MG, DAILY
  2. GENOTROPIN [Suspect]
     Active Substance: SOMATROPIN
     Indication: END STAGE RENAL DISEASE
     Dosage: 0.3 MG, WEEKLY, (7 DAYS A WEEK)
  3. GENOTROPIN [Suspect]
     Active Substance: SOMATROPIN
     Indication: FAILURE TO THRIVE
     Dosage: 0.03 MG, 1X/DAY

REACTIONS (3)
  - Product prescribing error [Unknown]
  - Off label use [Unknown]
  - Product use in unapproved indication [Unknown]
